FAERS Safety Report 5566477-3 (Version None)
Quarter: 2007Q4

REPORT INFORMATION
  Report Type: 
  Country: None (occurrence: None)
  Receive Date: 20071219
  Receipt Date: 20071214
  Transmission Date: 20080405
  Serious: Yes (Hospitalization)
  Sender: FDA-Public Use
  Company Number: KR-AVENTIS-200717643GDDC

PATIENT
  Age: 40 Year
  Sex: Female
  Weight: 64 kg

DRUGS (7)
  1. DOCETAXEL [Suspect]
     Indication: BREAST CANCER
     Route: 042
     Dates: start: 20070508, end: 20070508
  2. ADRIAMYCIN PFS [Suspect]
     Indication: BREAST CANCER
     Dates: start: 20070508, end: 20070508
  3. CYCLOPHOSPHAMIDE [Suspect]
     Indication: BREAST CANCER
     Dates: start: 20070508, end: 20070508
  4. TROPISETRON [Concomitant]
     Route: 042
  5. LEVOSULPIRIDE [Concomitant]
  6. DEXAMETHASONE TAB [Concomitant]
  7. METOCLOPRAMIDE [Concomitant]

REACTIONS (1)
  - PANCREATITIS ACUTE [None]
